FAERS Safety Report 7808450 (Version 5)
Quarter: 2014Q3

REPORT INFORMATION
  Report Type: Spontaneous
  Country: US (occurrence: US)
  Receive Date: 20101130
  Receipt Date: 20140729
  Transmission Date: 20150326
  Serious: Yes (Hospitalization, Other)
  Sender: FDA-Public Use
  Company Number: US-009507513-2010SP038514

PATIENT
  Sex: Female
  Weight: 67.13 kg

DRUGS (4)
  1. NUVARING [Suspect]
     Active Substance: ETHINYL ESTRADIOL\ETONOGESTREL
     Indication: DYSFUNCTIONAL UTERINE BLEEDING
  2. NUVARING [Suspect]
     Active Substance: ETHINYL ESTRADIOL\ETONOGESTREL
     Indication: MENSTRUAL CYCLE MANAGEMENT
     Route: 067
     Dates: start: 20080627, end: 20080715
  3. COUMADIN [Suspect]
     Active Substance: WARFARIN SODIUM
     Indication: ANTICOAGULANT THERAPY
     Dates: start: 200807, end: 20090123
  4. COUMADIN [Suspect]
     Active Substance: WARFARIN SODIUM
     Dates: start: 200902

REACTIONS (17)
  - Hyperlipidaemia [Unknown]
  - Menometrorrhagia [Unknown]
  - Pulmonary infarction [Recovered/Resolved with Sequelae]
  - Pulmonary embolism [Recovered/Resolved with Sequelae]
  - Metrorrhagia [Unknown]
  - Hypercoagulation [Unknown]
  - Off label use [Unknown]
  - Pain in extremity [Unknown]
  - Emphysema [Unknown]
  - Pulmonary embolism [Unknown]
  - Deep vein thrombosis [Recovered/Resolved]
  - Drug hypersensitivity [Unknown]
  - Transaminases increased [Unknown]
  - Lung disorder [Unknown]
  - Hypertension [Unknown]
  - Anxiety [Unknown]
  - Pleurisy [Recovered/Resolved]

NARRATIVE: CASE EVENT DATE: 2008
